FAERS Safety Report 7786143-3 (Version None)
Quarter: 2011Q3

REPORT INFORMATION
  Report Type: 
  Country: None (occurrence: None)
  Receive Date: 20110929
  Receipt Date: 20110926
  Transmission Date: 20111222
  Serious: Yes (Hospitalization)
  Sender: FDA-Public Use
  Company Number: JP-PFIZER INC-2010176781

PATIENT
  Age: 61 Year
  Sex: Male
  Weight: 43 kg

DRUGS (4)
  1. VALPROIC ACID [Concomitant]
     Dosage: 800 MG, 1X/DAY
     Route: 048
  2. TEMSIROLIMUS [Suspect]
     Indication: RENAL CELL CARCINOMA
     Dosage: 25 MG, SINGLE
     Route: 041
     Dates: start: 20101217, end: 20101217
  3. TEMSIROLIMUS [Suspect]
     Dosage: 25 MG, SINGLE
     Route: 041
     Dates: start: 20101210, end: 20101210
  4. RESTAMIN [Concomitant]
     Indication: PROPHYLAXIS
     Dosage: 30 MG, 1X/DAY
     Route: 048
     Dates: start: 20101217, end: 20101217

REACTIONS (3)
  - LOSS OF CONSCIOUSNESS [None]
  - CONVULSION [None]
  - INFUSION RELATED REACTION [None]
